FAERS Safety Report 4788570-5 (Version None)
Quarter: 2005Q4

REPORT INFORMATION
  Report Type: 
  Country: None (occurrence: None)
  Receive Date: 20051005
  Receipt Date: 20051005
  Transmission Date: 20060501
  Serious: Yes (Hospitalization)
  Sender: FDA-Public Use
  Company Number: None

PATIENT
  Age: 52 Year
  Sex: Female
  Weight: 61 kg

DRUGS (13)
  1. METHYLPREDNISOLONE [Suspect]
     Indication: GRAFT VERSUS HOST DISEASE
     Dosage: IV PULSE TX + MD
     Dates: start: 20050128, end: 20050307
  2. CHOLESTYRAMINE [Concomitant]
  3. INSULIN [Concomitant]
  4. DIPHENHYDRAMINE [Concomitant]
  5. HYDROXYZINE [Concomitant]
  6. LANSOPRAZOLE [Concomitant]
  7. MORPHINE [Concomitant]
  8. AMBISOME [Concomitant]
  9. VIT K [Concomitant]
  10. PSEUDOEPHEDRINE HCL [Concomitant]
  11. VISPERIDONE [Concomitant]
  12. CYA [Concomitant]
  13. BACTRIM [Concomitant]

REACTIONS (2)
  - BEDRIDDEN [None]
  - MYOPATHY STEROID [None]
